FAERS Safety Report 20550735 (Version 1)
Quarter: 2022Q1

REPORT INFORMATION
  Report Type: Report from Study
  Country: IT (occurrence: IT)
  Receive Date: 20220304
  Receipt Date: 20220304
  Transmission Date: 20220423
  Serious: Yes (Other)
  Sender: FDA-Public Use
  Company Number: None

PATIENT
  Age: 82 Year
  Sex: Male

DRUGS (12)
  1. RAMIPRIL [Suspect]
     Active Substance: RAMIPRIL
     Dosage: 2.5 MG
     Route: 048
     Dates: start: 20210101, end: 20220128
  2. DILTIAZEM HYDROCHLORIDE [Suspect]
     Active Substance: DILTIAZEM HYDROCHLORIDE
     Dosage: FORM STRENGTH: 60 MG, UNIT DOSE: 3 DF
     Route: 048
     Dates: start: 20210101, end: 20220128
  3. TRAZODONE HYDROCHLORIDE [Suspect]
     Active Substance: TRAZODONE HYDROCHLORIDE
     Dosage: FORM STRENGTH: 75 MG
     Route: 048
     Dates: start: 20210101, end: 20220128
  4. ZOLOFT [Concomitant]
     Active Substance: SERTRALINE HYDROCHLORIDE
     Dosage: FORM STRENGTH: 50 MG
  5. TOUJEO [Concomitant]
     Active Substance: INSULIN GLARGINE
  6. ACETAMINOPHEN [Concomitant]
     Active Substance: ACETAMINOPHEN
     Dosage: 3 DF
  7. MORPHINE SULFATE [Concomitant]
     Active Substance: MORPHINE SULFATE
     Dosage: FORM STRENGTH: 20 MG / ML, UNIT DOSE: 4 GTT
  8. MOVICOL [Concomitant]
     Active Substance: POLYETHYLENE GLYCOL 3350\POTASSIUM CHLORIDE\SODIUM BICARBONATE\SODIUM CHLORIDE
  9. HUMALOG [Concomitant]
     Active Substance: INSULIN LISPRO
     Dosage: IN VIAL, FORM STRENGTH: 100 U / ML
  10. NALOXONE HYDROCHLORIDE\OXYCODONE HYDROCHLORIDE [Concomitant]
     Active Substance: NALOXONE HYDROCHLORIDE\OXYCODONE HYDROCHLORIDE
     Dosage: EXTENDED RELEASE, FORM STRENGTH: 5 MG / 2,5MG, UNIT DOSE: 2 DF
  11. XARELTO [Concomitant]
     Active Substance: RIVAROXABAN
     Dosage: FORM STRENGTH: 20 MG
  12. OMEPRAZOLE [Concomitant]
     Active Substance: OMEPRAZOLE
     Dosage: 20 MG

REACTIONS (2)
  - Hypotension [Recovering/Resolving]
  - Heart rate decreased [Recovering/Resolving]

NARRATIVE: CASE EVENT DATE: 20220128
